FAERS Safety Report 11641813 (Version 1)
Quarter: 2015Q4

REPORT INFORMATION
  Report Type: Spontaneous
  Country: CA (occurrence: CA)
  Receive Date: 20151019
  Receipt Date: 20151019
  Transmission Date: 20160304
  Serious: Yes (Hospitalization)
  Sender: FDA-Public Use
  Company Number: CA-MYLANLABS-2015M1035148

PATIENT

DRUGS (4)
  1. PREDNISONE. [Suspect]
     Active Substance: PREDNISONE
     Dosage: 30 MG/DAY
     Route: 065
  2. ACITRETIN. [Suspect]
     Active Substance: ACITRETIN
     Dosage: 20 MG/DAY
     Route: 065
  3. ACITRETIN. [Suspect]
     Active Substance: ACITRETIN
     Indication: PRODUCT USED FOR UNKNOWN INDICATION
     Dosage: 10MG/DAY, DOSE INCREASED TO 20 MG/DAY
     Route: 065
  4. PREDNISONE. [Suspect]
     Active Substance: PREDNISONE
     Indication: PRODUCT USED FOR UNKNOWN INDICATION
     Dosage: 20 MG/DAY, LATER INCREASED TO 30 MG/DAY
     Route: 065

REACTIONS (2)
  - Hepatitis [Recovered/Resolved]
  - Hyperglycaemia [Recovered/Resolved]
